FAERS Safety Report 5249970-2 (Version None)
Quarter: 2007Q1

REPORT INFORMATION
  Report Type: 
  Country: None (occurrence: None)
  Receive Date: 20070228
  Receipt Date: 20060112
  Transmission Date: 20070707
  Serious: No
  Sender: FDA-Public Use
  Company Number: US-GLAXOSMITHKLINE-A0589029A

PATIENT
  Age: 55 Year
  Sex: Male

DRUGS (6)
  1. LAMICTAL [Suspect]
     Dosage: 100MG TWICE PER DAY
     Route: 048
     Dates: start: 20050101
  2. TOPAMAX [Concomitant]
  3. UNKNOWN MEDICATION [Concomitant]
  4. NORVASC [Concomitant]
  5. PRAVACHOL [Concomitant]
  6. NEXIUM [Concomitant]

REACTIONS (2)
  - DISORIENTATION [None]
  - HYPOTRICHOSIS [None]
